FAERS Safety Report 19601637 (Version 1)
Quarter: 2021Q3

REPORT INFORMATION
  Report Type: Spontaneous
  Country: BR (occurrence: BR)
  Receive Date: 20210723
  Receipt Date: 20210723
  Transmission Date: 20211014
  Serious: Yes (Other)
  Sender: FDA-Public Use
  Company Number: BR-TORRENT-00005637

PATIENT
  Age: 23 Year
  Sex: Male
  Weight: 89 kg

DRUGS (2)
  1. TOARIP [ARIPIPRAZOLE] [Suspect]
     Active Substance: ARIPIPRAZOLE
     Indication: TOURETTE^S DISORDER
     Dosage: ONE TABLET AT NIGHT
     Route: 048
     Dates: start: 2020
  2. DEPAKENE [Concomitant]
     Active Substance: VALPROIC ACID
     Indication: SEIZURE
     Dosage: 10 ML DAILY
     Route: 065
     Dates: start: 2020

REACTIONS (2)
  - Seizure [Not Recovered/Not Resolved]
  - Off label use [Not Recovered/Not Resolved]

NARRATIVE: CASE EVENT DATE: 2020
